FAERS Safety Report 7110317-8 (Version None)
Quarter: 2010Q4

REPORT INFORMATION
  Report Type: 
  Country: None (occurrence: None)
  Receive Date: 20101118
  Receipt Date: 20100917
  Transmission Date: 20110411
  Serious: No
  Sender: FDA-Public Use
  Company Number: A0883334A

PATIENT
  Age: 56 Year
  Sex: Female

DRUGS (4)
  1. COREG CR [Suspect]
     Dosage: 80MG UNKNOWN
     Route: 048
     Dates: start: 20100101
  2. DIOVAN [Concomitant]
     Dosage: 320MG UNKNOWN
  3. LASIX [Concomitant]
     Dosage: 20MG UNKNOWN
  4. POTASSIUM CHLORIDE [Concomitant]
     Dosage: 10MEQ UNKNOWN

REACTIONS (1)
  - TOOTH LOSS [None]
